FAERS Safety Report 8129864-5 (Version None)
Quarter: 2011Q4

REPORT INFORMATION
  Report Type: 
  Country: None (occurrence: None)
  Receive Date: 20111227
  Receipt Date: 20111004
  Transmission Date: 20120403
  Serious: No
  Sender: FDA-Public Use
  Company Number: PHEH2O11US00880

PATIENT
  Age: 63 Year
  Sex: Male

DRUGS (1)
  1. GILENYA [Suspect]
     Indication: MULTIPLE SCLEROSIS
     Dosage: 0.5 MG, DAILY, ORAL
     Route: 048
     Dates: start: 20110525

REACTIONS (8)
  - DIZZINESS [None]
  - ARTHRALGIA [None]
  - HEADACHE [None]
  - FATIGUE [None]
  - INSOMNIA [None]
  - MUSCULAR WEAKNESS [None]
  - BACK PAIN [None]
  - MULTIPLE SCLEROSIS RELAPSE [None]
